FAERS Safety Report 14936381 (Version 1)
Quarter: 2018Q2

REPORT INFORMATION
  Report Type: Report from Study
  Country: None (occurrence: CO)
  Receive Date: 20180524
  Receipt Date: 20180524
  Transmission Date: 20180711
  Serious: Yes (Other)
  Sender: FDA-Public Use
  Company Number: CO-ABBVIE-18K-036-2367024-00

PATIENT
  Sex: Male
  Weight: 42 kg

DRUGS (1)
  1. HUMIRA [Suspect]
     Active Substance: ADALIMUMAB
     Indication: ANKYLOSING SPONDYLITIS
     Route: 058
     Dates: start: 20110404, end: 20180306

REACTIONS (1)
  - Uveitis [Recovering/Resolving]
